FAERS Safety Report 21320964 (Version 2)
Quarter: 2022Q3

REPORT INFORMATION
  Report Type: Spontaneous
  Country: US (occurrence: US)
  Receive Date: 20220912
  Receipt Date: 20220913
  Transmission Date: 20221027
  Serious: No
  Sender: FDA-Public Use
  Company Number: US-NOVARTISTESTPH-NVSC2022US204898

PATIENT
  Sex: Female

DRUGS (2)
  1. TAFINLAR [Suspect]
     Active Substance: DABRAFENIB MESYLATE
     Indication: Malignant respiratory tract neoplasm
     Dosage: 75 MG, Q12H
     Route: 048
     Dates: start: 202208
  2. MEKINIST [Suspect]
     Active Substance: TRAMETINIB DIMETHYL SULFOXIDE
     Indication: Malignant respiratory tract neoplasm
     Dosage: 1 MG, QD
     Route: 048
     Dates: start: 202208

REACTIONS (1)
  - Nausea [Unknown]
